FAERS Safety Report 16831555 (Version 1)
Quarter: 2019Q3

REPORT INFORMATION
  Report Type: Report from Study
  Country: US (occurrence: US)
  Receive Date: 20190920
  Receipt Date: 20190920
  Transmission Date: 20191005
  Serious: Yes (Hospitalization)
  Sender: FDA-Public Use
  Company Number: US-GILEAD-2019-0426103

PATIENT
  Age: 58 Year
  Sex: Female

DRUGS (11)
  1. DOK [Concomitant]
     Active Substance: DOCUSATE SODIUM
  2. AMBRISENTAN [Suspect]
     Active Substance: AMBRISENTAN
     Indication: PULMONARY HYPERTENSION
     Dosage: 10 MG, QD
     Route: 065
     Dates: start: 20140630
  3. PROAIR [FLUTICASONE PROPIONATE] [Concomitant]
     Active Substance: FLUTICASONE PROPIONATE
  4. ONDANSETRON [Concomitant]
     Active Substance: ONDANSETRON
  5. DOXYCYCLIN [DOXYCYCLINE HYCLATE] [Concomitant]
  6. ELIQUIS [Concomitant]
     Active Substance: APIXABAN
  7. ALBUTEROL [SALBUTAMOL SULFATE] [Concomitant]
     Active Substance: ALBUTEROL SULFATE
  8. MIDODRINE [Concomitant]
     Active Substance: MIDODRINE
  9. HYDROXYCHLOROQUINE [Concomitant]
     Active Substance: HYDROXYCHLOROQUINE
  10. LORATADINE. [Concomitant]
     Active Substance: LORATADINE
  11. METOPROLOL. [Concomitant]
     Active Substance: METOPROLOL

REACTIONS (2)
  - Intentional product use issue [Not Recovered/Not Resolved]
  - Dyspnoea [Unknown]

NARRATIVE: CASE EVENT DATE: 20190825
